FAERS Safety Report 9440973 (Version 2)
Quarter: 2015Q1

REPORT INFORMATION
  Report Type: Spontaneous
  Country: US (occurrence: None)
  Receive Date: 20130801
  Receipt Date: 20150122
  Transmission Date: 20150721
  Serious: Yes (Hospitalization)
  Sender: FDA-Public Use
  Company Number: JPI-P-029503

PATIENT
  Age: 49 Year
  Sex: Female

DRUGS (13)
  1. ZOLOFT [Concomitant]
     Active Substance: SERTRALINE HYDROCHLORIDE
  2. TESSALON (BENZONATATE) [Concomitant]
  3. ACIDINIUM BROMIDE (ACLIDINIUM BROMIDE) [Concomitant]
  4. AMLODIPINE/BENAZEPRIL [Concomitant]
     Active Substance: AMLODIPINE BESYLATE\BENAZEPRIL HYDROCHLORIDE
  5. SYMBICORT FORTE (BUDESONIDE/FORMOTEROL FUMARATE) [Concomitant]
  6. CEFUROXIME (CEFUROXIME SODIUM) [Concomitant]
  7. XYREM [Suspect]
     Active Substance: SODIUM OXYBATE
     Indication: NARCOLEPSY
     Route: 048
     Dates: start: 20060327
  8. COMBIVENT SM (IPRATROPIUM BROMIDE, SALBUTAMOL SULFATE) [Concomitant]
  9. PREDNISONE (PREDNISONE) [Concomitant]
     Active Substance: PREDNISONE
  10. XANAX [Concomitant]
     Active Substance: ALPRAZOLAM
  11. SPIRONOLACTONE (SPIRONOLACTONE) [Concomitant]
     Active Substance: SPIRONOLACTONE
  12. VENTOLIN (SALBUTAMOL SULFATE) [Concomitant]
  13. SPIRIVA COMBI (TIOTROPIUM BROMIDE) [Concomitant]

REACTIONS (1)
  - Pneumonia [None]

NARRATIVE: CASE EVENT DATE: 2011
